FAERS Safety Report 5784583-5 (Version None)
Quarter: 2008Q2

REPORT INFORMATION
  Report Type: 
  Country: None (occurrence: None)
  Receive Date: 20080624
  Receipt Date: 20080616
  Transmission Date: 20081010
  Serious: Yes (Hospitalization)
  Sender: FDA-Public Use
  Company Number: MX-AVENTIS-200815688GDDC

PATIENT
  Age: 72 Year
  Sex: Female
  Weight: 52 kg

DRUGS (7)
  1. DOCETAXEL [Suspect]
     Route: 042
     Dates: start: 20080424
  2. GEMCITABINE HCL [Suspect]
     Dosage: DOSE: 1000 MG/M2 ON DAY 1 AND DAY 8
     Route: 042
     Dates: start: 20080424
  3. CAPECITABINE [Suspect]
     Dosage: DOSE: 3000 MG/DAY ON DAY 1 AND DAY 14
     Route: 048
     Dates: start: 20080424
  4. NEURONTIN [Concomitant]
     Dates: start: 20060320
  5. CAPTOPRIL [Concomitant]
     Dates: start: 20060315
  6. ALDACTONE [Concomitant]
     Dates: start: 20070726
  7. FLUOROURACIL [Concomitant]

REACTIONS (1)
  - SINUS BRADYCARDIA [None]
